FAERS Safety Report 14967717 (Version 1)
Quarter: 2018Q2

REPORT INFORMATION
  Report Type: Spontaneous
  Country: US (occurrence: US)
  Receive Date: 20180604
  Receipt Date: 20180604
  Transmission Date: 20180711
  Serious: Yes (Other)
  Sender: FDA-Public Use
  Company Number: US-BAYER-2018-104756

PATIENT
  Age: 61 Year
  Sex: Male

DRUGS (1)
  1. ULTRAVIST [Suspect]
     Active Substance: IOPROMIDE
     Indication: HAEMATURIA
     Dosage: 100 ML, ONCE
     Route: 042
     Dates: start: 20180511, end: 20180511

REACTIONS (4)
  - Eye pruritus [None]
  - Throat irritation [None]
  - Lip pruritus [None]
  - Eye swelling [None]

NARRATIVE: CASE EVENT DATE: 20180511
